FAERS Safety Report 11360538 (Version 1)
Quarter: 2015Q3

REPORT INFORMATION
  Report Type: Report from Study
  Country: US (occurrence: US)
  Receive Date: 20150810
  Receipt Date: 20150810
  Transmission Date: 20151125
  Serious: No
  Sender: FDA-Public Use
  Company Number: PHEH2015US005620

PATIENT
  Sex: Male

DRUGS (4)
  1. EXTAVIA [Suspect]
     Active Substance: INTERFERON BETA-1B
     Dosage: 0.125MG, QOD (WEEKS 3 TO 4)
     Route: 058
  2. EXTAVIA [Suspect]
     Active Substance: INTERFERON BETA-1B
     Indication: MULTIPLE SCLEROSIS
     Dosage: 0.062 MG, QOD (WEEKS 1 TO 2)
     Route: 058
     Dates: start: 20150325
  3. EXTAVIA [Suspect]
     Active Substance: INTERFERON BETA-1B
     Dosage: 0.187MG, QOD (WEEKS 5 TO 6)
     Route: 058
  4. EXTAVIA [Suspect]
     Active Substance: INTERFERON BETA-1B
     Dosage: 0.25 MG, QOD
     Route: 058

REACTIONS (4)
  - Malaise [Recovering/Resolving]
  - Influenza [Recovering/Resolving]
  - Injection site bruising [Not Recovered/Not Resolved]
  - Injection site pain [Not Recovered/Not Resolved]
